FAERS Safety Report 4336985-1 (Version None)
Quarter: 2004Q1

REPORT INFORMATION
  Report Type: 
  Country: None (occurrence: None)
  Receive Date: 20040329
  Receipt Date: 20040205
  Transmission Date: 20041129
  Serious: No
  Sender: FDA-Public Use
  Company Number: USA040258634

PATIENT
  Age: 43 Year
  Sex: Female
  Weight: 64 kg

DRUGS (2)
  1. STRATTERA [Suspect]
     Indication: ATTENTION DEFICIT/HYPERACTIVITY DISORDER
     Dosage: 85 MG IN THE MORNING
     Dates: start: 20031101
  2. CELEXA [Concomitant]

REACTIONS (1)
  - DEPRESSION [None]
